FAERS Safety Report 16746745 (Version 5)
Quarter: 2021Q1

REPORT INFORMATION
  Report Type: Report from Study
  Country: NL (occurrence: NL)
  Receive Date: 20190827
  Receipt Date: 20210122
  Transmission Date: 20210419
  Serious: Yes (Other)
  Sender: FDA-Public Use
  Company Number: NL-PFIZER INC-2018104336

PATIENT
  Age: 64 Year
  Sex: Female
  Weight: 63 kg

DRUGS (16)
  1. DUODOPA [Suspect]
     Active Substance: CARBIDOPA\LEVODOPA
     Dosage: MD 12.1 ML, CD 5.2 ML/H, ED 2.5  ML
     Route: 050
  2. NEDIOS [Concomitant]
     Dosage: UNK
  3. LISINOPRIL/HYDROCHLOORTHIAZIDE [Concomitant]
     Active Substance: HYDROCHLOROTHIAZIDE\LISINOPRIL
     Dosage: 20/12.5 MG
  4. CLOZAPINE. [Concomitant]
     Active Substance: CLOZAPINE
     Dosage: UNK
  5. DUODOPA [Suspect]
     Active Substance: CARBIDOPA\LEVODOPA
     Dosage: MD: 12.2  ML, CD: 4.2 ML/H, ED: 2.5  ML
     Route: 050
  6. DUODOPA [Suspect]
     Active Substance: CARBIDOPA\LEVODOPA
     Dosage: MD 12.1, CD 2.5, ED 4.0
     Route: 050
  7. DUODOPA [Suspect]
     Active Substance: CARBIDOPA\LEVODOPA
     Dosage: MD 12.1  ML, CD 4.9 ML/H, ED 2.5  ML
     Route: 050
  8. DUODOPA [Suspect]
     Active Substance: CARBIDOPA\LEVODOPA
     Dosage: MD: 12.1  ML, CD: 4.4 ML/H, ED: 2.5  ML
     Route: 050
  9. EXELON [Concomitant]
     Active Substance: RIVASTIGMINE TARTRATE
     Dosage: 13.3 MG, 1X/DAY
  10. FUROSEMIDE. [Concomitant]
     Active Substance: FUROSEMIDE
     Dosage: UNK, 1X/DAY
     Dates: end: 20170201
  11. LEVODOPA/CARBIDOPA [Concomitant]
     Active Substance: CARBIDOPA\LEVODOPA
     Dosage: 100/25 MG
  12. DOXYCYCLINE HYCLATE. [Suspect]
     Active Substance: DOXYCYCLINE HYCLATE
     Dosage: UNK
     Dates: start: 20160427
  13. DUODOPA [Suspect]
     Active Substance: CARBIDOPA\LEVODOPA
     Dosage: MD: 12.1  ML, CD: 4.1 ML/H, ED: 2.5  ML
     Route: 050
  14. DUODOPA [Suspect]
     Active Substance: CARBIDOPA\LEVODOPA
     Dosage: MD: 12.1  ML, CD: 4.6 ML/H, ED: 2.5  ML
     Route: 050
  15. LEVODOPA/CARBIDOPA [Concomitant]
     Active Substance: CARBIDOPA\LEVODOPA
     Dosage: 100/25 MG, 1X/DAY
  16. DUODOPA [Suspect]
     Active Substance: CARBIDOPA\LEVODOPA
     Indication: PARKINSON^S DISEASE
     Dosage: MD 12.1 ML, CD 5.9 ML/H, ED 2.5 ML
     Route: 050
     Dates: start: 20160111

REACTIONS (55)
  - On and off phenomenon [Not Recovered/Not Resolved]
  - Catheter site discharge [Recovered/Resolved]
  - Dry mouth [Not Recovered/Not Resolved]
  - Hallucination, visual [Not Recovered/Not Resolved]
  - Hallucination [Recovering/Resolving]
  - Vomiting [Not Recovered/Not Resolved]
  - Musculoskeletal stiffness [Unknown]
  - Medical device site hyperaesthesia [Recovered/Resolved]
  - Stoma site extravasation [Not Recovered/Not Resolved]
  - Disinhibition [Not Recovered/Not Resolved]
  - Cognitive disorder [Not Recovered/Not Resolved]
  - Oral pain [Not Recovered/Not Resolved]
  - Nuchal rigidity [Not Recovered/Not Resolved]
  - Freezing phenomenon [Not Recovered/Not Resolved]
  - Stoma site discharge [Recovered/Resolved]
  - Faeces hard [Unknown]
  - Hypotension [Not Recovered/Not Resolved]
  - Catheter site erythema [Recovered/Resolved]
  - Stoma site discomfort [Recovered/Resolved]
  - Muscle rigidity [Not Recovered/Not Resolved]
  - Headache [Not Recovered/Not Resolved]
  - Drug level below therapeutic [Unknown]
  - Urinary incontinence [Unknown]
  - Fear [Not Recovered/Not Resolved]
  - Ear infection [Not Recovered/Not Resolved]
  - Delusion [Recovered/Resolved]
  - Stoma site erythema [Recovered/Resolved]
  - Hallucination, tactile [Not Recovered/Not Resolved]
  - Limb discomfort [Not Recovered/Not Resolved]
  - Gait disturbance [Not Recovered/Not Resolved]
  - Fatigue [Not Recovered/Not Resolved]
  - Dyskinesia [Not Recovered/Not Resolved]
  - Hypoacusis [Not Recovered/Not Resolved]
  - Obsessive-compulsive disorder [Not Recovered/Not Resolved]
  - Stoma site pain [Recovered/Resolved]
  - Hallucination, auditory [Not Recovered/Not Resolved]
  - Hyperkinesia [Not Recovered/Not Resolved]
  - Stoma site irritation [Recovered/Resolved]
  - Skin laceration [Unknown]
  - Pruritus [Not Recovered/Not Resolved]
  - Cognitive disorder [Not Recovered/Not Resolved]
  - Infrequent bowel movements [Unknown]
  - Skin irritation [Not Recovered/Not Resolved]
  - Therapeutic product effect incomplete [Recovered/Resolved]
  - Musculoskeletal stiffness [Not Recovered/Not Resolved]
  - Slow speech [Not Recovered/Not Resolved]
  - Grimacing [Not Recovered/Not Resolved]
  - Influenza [Not Recovered/Not Resolved]
  - Hallucination, auditory [Recovering/Resolving]
  - Hyperkinesia [Recovered/Resolved]
  - Bradykinesia [Not Recovered/Not Resolved]
  - Stoma complication [Recovered/Resolved]
  - Neck pain [Not Recovered/Not Resolved]
  - Oral discomfort [Not Recovered/Not Resolved]
  - Nausea [Recovering/Resolving]

NARRATIVE: CASE EVENT DATE: 20160501
